FAERS Safety Report 6636580-5 (Version None)
Quarter: 2010Q1

REPORT INFORMATION
  Report Type: 
  Country: None (occurrence: None)
  Receive Date: 20100226
  Receipt Date: 20090518
  Transmission Date: 20100710
  Serious: Yes (Hospitalization, Other)
  Sender: FDA-Public Use
  Company Number: 279379

PATIENT
  Age: 50 Year
  Sex: Male
  Weight: 82.1 kg

DRUGS (7)
  1. NOVOSEVEN RT [Suspect]
     Indication: HAEMARTHROSIS
     Dosage: 10 MG, INTRAVENOUS; SEE IMAGE
     Route: 042
     Dates: start: 20080805, end: 20080828
  2. NOVOSEVEN RT [Suspect]
     Indication: HAEMARTHROSIS
     Dosage: 10 MG, INTRAVENOUS; SEE IMAGE
     Route: 042
     Dates: start: 20080829, end: 20080830
  3. NOVOSEVEN RT [Suspect]
     Indication: HAEMARTHROSIS
     Dosage: 10 MG, INTRAVENOUS; SEE IMAGE
     Route: 042
     Dates: start: 20080831
  4. LISINOPRIL HYDROCHLOROTHIAZID (HYDROCHLOROTHIAZIDE, LISINOPRIL) [Concomitant]
  5. PERCOCET [Concomitant]
  6. COREG CR (CARVEDILOL) [Concomitant]
  7. MELOXICAM [Concomitant]

REACTIONS (1)
  - DRUG INEFFECTIVE [None]
